FAERS Safety Report 4893545-1 (Version None)
Quarter: 2006Q1

REPORT INFORMATION
  Report Type: 
  Country: None (occurrence: None)
  Receive Date: 20060124
  Receipt Date: 20060112
  Transmission Date: 20060701
  Serious: Yes (Death)
  Sender: FDA-Public Use
  Company Number: HQWYE287431MAR04

PATIENT
  Age: 21 Week
  Sex: Female

DRUGS (9)
  1. AVLOCARDYL [Suspect]
     Route: 064
  2. ATARAX [Suspect]
     Route: 064
  3. BUMETANIDE [Suspect]
     Route: 064
  4. EFFERALGAN       (PARACETAMOL,) [Suspect]
     Route: 064
  5. NEORECORMON               (EPOETIN BETA,) [Suspect]
     Route: 064
  6. PROGRAF [Suspect]
     Route: 064
  7. SPECIAFOLDINE           (FOLIC ACID,) [Suspect]
     Indication: HYPERHOMOCYSTEINAEMIA
     Route: 064
     Dates: start: 20030601
  8. VALSARTAN [Suspect]
     Indication: HYPERTENSION
     Dosage: 2 DOSE 1X PER 1 DAY
     Route: 064
     Dates: start: 20030315, end: 20040114
  9. ZOMIG [Suspect]
     Indication: MIGRAINE
     Route: 064

REACTIONS (8)
  - ABORTION INDUCED [None]
  - CONGENITAL ANOMALY [None]
  - DRUG EXPOSURE DURING PREGNANCY [None]
  - FOETAL MOVEMENTS DECREASED [None]
  - GROWTH RETARDATION [None]
  - OLIGOHYDRAMNIOS [None]
  - PLACENTAL INFARCTION [None]
  - PLACENTAL INSUFFICIENCY [None]
